FAERS Safety Report 9002531 (Version 2)
Quarter: 2013Q4

REPORT INFORMATION
  Report Type: Spontaneous
  Country: US (occurrence: US)
  Receive Date: 20130107
  Receipt Date: 20131206
  Transmission Date: 20140711
  Serious: Yes (Life-Threatening)
  Sender: FDA-Public Use
  Company Number: US-BAYER-2013-001063

PATIENT
  Age: 32 Year
  Sex: Female

DRUGS (9)
  1. YAZ [Suspect]
     Dosage: UNK
  2. GIANVI [Suspect]
     Dosage: UNK
  3. OCELLA [Suspect]
  4. SAFYRAL [Suspect]
  5. YASMIN [Suspect]
  6. ZARAH [Suspect]
  7. BEYAZ [Suspect]
  8. LORTAB [Concomitant]
  9. IBUPROFEN [Concomitant]
     Dosage: 800 MG, UNK

REACTIONS (7)
  - Deep vein thrombosis [None]
  - Injury [None]
  - Pain [None]
  - General physical health deterioration [None]
  - Emotional distress [None]
  - Anxiety [None]
  - Anhedonia [None]
